FAERS Safety Report 14033634 (Version 1)
Quarter: 2017Q4

REPORT INFORMATION
  Report Type: Spontaneous
  Country: US (occurrence: None)
  Receive Date: 20171003
  Receipt Date: 20171003
  Transmission Date: 20180321
  Serious: Yes (Hospitalization)
  Sender: FDA-Public Use
  Company Number: None

PATIENT
  Age: 62 Year
  Sex: Female
  Weight: 54.4 kg

DRUGS (2)
  1. CISPLATIN. [Suspect]
     Active Substance: CISPLATIN
     Dates: end: 20170508
  2. ETOPOSIDE (VP-16) [Suspect]
     Active Substance: ETOPOSIDE
     Dates: end: 20170510

REACTIONS (5)
  - Device related infection [None]
  - Asthenia [None]
  - Staphylococcal sepsis [None]
  - Urinary tract infection [None]
  - Echocardiogram abnormal [None]

NARRATIVE: CASE EVENT DATE: 20170530
